FAERS Safety Report 7202543-4 (Version None)
Quarter: 2010Q4

REPORT INFORMATION
  Report Type: 
  Country: None (occurrence: None)
  Receive Date: 20101229
  Receipt Date: 20101216
  Transmission Date: 20110411
  Serious: Yes (Hospitalization)
  Sender: FDA-Public Use
  Company Number: CA-MERCK-1012USA02787

PATIENT
  Age: 72 Year
  Sex: Female

DRUGS (2)
  1. HYDRODIURIL [Suspect]
     Route: 048
  2. METOPROLOL [Suspect]
     Route: 065

REACTIONS (3)
  - BRADYCARDIA [None]
  - HYPOTENSION [None]
  - OVERDOSE [None]
